FAERS Safety Report 17024880 (Version 1)
Quarter: 2019Q4

REPORT INFORMATION
  Report Type: Spontaneous
  Country: HR (occurrence: HR)
  Receive Date: 20191113
  Receipt Date: 20191113
  Transmission Date: 20200122
  Serious: Yes (Other)
  Sender: FDA-Public Use
  Company Number: HR-ROCHE-2466519

PATIENT
  Sex: Female

DRUGS (2)
  1. RIVOTRIL [Suspect]
     Active Substance: CLONAZEPAM
     Indication: EPILEPSY
     Route: 048
     Dates: start: 20190728, end: 20190728
  2. RIVOTRIL [Suspect]
     Active Substance: CLONAZEPAM
     Route: 048
     Dates: start: 20190728, end: 20190728

REACTIONS (4)
  - Rash [Unknown]
  - Intentional overdose [Unknown]
  - Somnolence [Unknown]
  - Suicide attempt [Unknown]

NARRATIVE: CASE EVENT DATE: 20190728
